FAERS Safety Report 9355306 (Version 2)
Quarter: 2013Q3

REPORT INFORMATION
  Report Type: Report from Study
  Country: CN (occurrence: CN)
  Receive Date: 20130619
  Receipt Date: 20130820
  Transmission Date: 20140515
  Serious: No
  Sender: FDA-Public Use
  Company Number: CN-ROCHE-1238213

PATIENT
  Age: 39 Year
  Sex: Male

DRUGS (1)
  1. PEGASYS [Suspect]
     Indication: HEPATITIS B
     Route: 058
     Dates: start: 20121207, end: 20130412

REACTIONS (1)
  - Thyroxine increased [Not Recovered/Not Resolved]
